FAERS Safety Report 13344570 (Version 2)
Quarter: 2017Q2

REPORT INFORMATION
  Report Type: Spontaneous
  Country: DE (occurrence: DE)
  Receive Date: 20170317
  Receipt Date: 20170407
  Transmission Date: 20170830
  Serious: Yes (Hospitalization, Other)
  Sender: FDA-Public Use
  Company Number: DE-BIOGEN-2017BI00371364

PATIENT
  Age: 44 Year
  Sex: Female

DRUGS (1)
  1. TYSABRI [Suspect]
     Active Substance: NATALIZUMAB
     Indication: MULTIPLE SCLEROSIS
     Route: 042
     Dates: start: 20120513, end: 201209

REACTIONS (3)
  - Stiff person syndrome [Recovered/Resolved]
  - Breast cancer metastatic [Recovered/Resolved]
  - Myelitis transverse [Recovered/Resolved]

NARRATIVE: CASE EVENT DATE: 201209
